FAERS Safety Report 15727527 (Version 3)
Quarter: 2019Q1

REPORT INFORMATION
  Report Type: Report from Study
  Country: FR (occurrence: FR)
  Receive Date: 20181217
  Receipt Date: 20190125
  Transmission Date: 20190417
  Serious: Yes (Hospitalization)
  Sender: FDA-Public Use
  Company Number: FR-ROCHE-2229712

PATIENT
  Age: 59 Year
  Sex: Female
  Weight: 55.7 kg

DRUGS (2)
  1. ATEZOLIZUMAB. [Suspect]
     Active Substance: ATEZOLIZUMAB
     Indication: NEOPLASM
     Dosage: DATE OF ATEZOLIZUMAB LAST DOSE PRIOR TO SERIOUS ADVERSE EVENT ONSET: 15/NOV/2018
     Route: 042
     Dates: start: 20170606
  2. SELICRELUMAB. [Suspect]
     Active Substance: SELICRELUMAB
     Indication: NEOPLASM
     Dosage: DATE OF RO 7009789 (CD40 AGONIST) LAST DOSE PRIOR TO SERIOUS ADVERSE EVENT ONSET: 07/JUN/2017
     Route: 058
     Dates: start: 20170607, end: 20181206

REACTIONS (2)
  - Hepatocellular injury [Recovered/Resolved]
  - Bile duct obstruction [Recovered/Resolved]

NARRATIVE: CASE EVENT DATE: 20181206
